FAERS Safety Report 7604360-X (Version None)
Quarter: 2011Q3

REPORT INFORMATION
  Report Type: 
  Country: None (occurrence: None)
  Receive Date: 20110712
  Receipt Date: 20110629
  Transmission Date: 20111222
  Serious: Yes (Hospitalization, Other)
  Sender: FDA-Public Use
  Company Number: BR-MEDIMMUNE-MEDI-0013319

PATIENT
  Sex: Male
  Weight: 2.85 kg

DRUGS (6)
  1. SYNAGIS [Suspect]
     Indication: BRONCHOPULMONARY DYSPLASIA
  2. DOMPERIDONE [Concomitant]
     Route: 048
     Dates: start: 20110427
  3. APETIL [Concomitant]
     Route: 048
     Dates: start: 20110427
  4. SYNAGIS [Suspect]
     Route: 030
     Dates: start: 20110601, end: 20110601
  5. PHENOBARBITAL [Concomitant]
     Route: 048
     Dates: start: 20110427
  6. FERROUS SULFATE TAB [Concomitant]
     Route: 048
     Dates: start: 20110427

REACTIONS (4)
  - ASPIRATION [None]
  - PNEUMONIA [None]
  - CYANOSIS [None]
  - ASPHYXIA [None]
